FAERS Safety Report 9301602 (Version 3)
Quarter: 2013Q2

REPORT INFORMATION
  Report Type: Spontaneous
  Country: FR (occurrence: FR)
  Receive Date: 20130521
  Receipt Date: 20130619
  Transmission Date: 20140414
  Serious: Yes (Life-Threatening, Hospitalization)
  Sender: FDA-Public Use
  Company Number: FR-ALEXION PHARMACEUTICALS INC.-A201301063

PATIENT
  Age: 0 Year
  Sex: Male

DRUGS (4)
  1. SOLIRIS 300MG [Suspect]
     Indication: HAEMOLYTIC URAEMIC SYNDROME
     Dosage: 300 MG, SINGLE
     Route: 042
     Dates: start: 20130425, end: 20130425
  2. SOLIRIS 300MG [Suspect]
     Dosage: UNK
     Route: 042
     Dates: start: 20130502
  3. VANCOMYCINE MERCK [Concomitant]
     Dosage: 10 MG/KG, TID
     Route: 048
     Dates: start: 20130424, end: 20130501
  4. PARACETAMOL [Concomitant]
     Dosage: 120 MG, TID
     Route: 042
     Dates: start: 20130420

REACTIONS (2)
  - Cardiac arrest [Recovered/Resolved]
  - Hypokalaemia [Unknown]
